FAERS Safety Report 8206238-X (Version None)
Quarter: 2012Q1

REPORT INFORMATION
  Report Type: 
  Country: None (occurrence: None)
  Receive Date: 20120313
  Receipt Date: 20120307
  Transmission Date: 20120608
  Serious: Yes (Other)
  Sender: FDA-Public Use
  Company Number: AU-ROCHE-1046648

PATIENT
  Sex: Male
  Weight: 61 kg

DRUGS (3)
  1. PEGASYS [Suspect]
     Indication: PRODUCT USED FOR UNKNOWN INDICATION
     Route: 058
     Dates: start: 20110916
  2. VALIUM [Concomitant]
     Indication: ANXIETY
     Route: 048
  3. RIBAVIRIN [Suspect]
     Indication: PRODUCT USED FOR UNKNOWN INDICATION
     Route: 048
     Dates: start: 20110916

REACTIONS (2)
  - GASTROOESOPHAGEAL REFLUX DISEASE [None]
  - NAUSEA [None]
